FAERS Safety Report 6881305-1 (Version None)
Quarter: 2010Q2

REPORT INFORMATION
  Report Type: 
  Country: None (occurrence: None)
  Receive Date: 20100630
  Receipt Date: 20100611
  Transmission Date: 20101027
  Serious: No
  Sender: FDA-Public Use
  Company Number: 2010-00475

PATIENT
  Age: 65 Year
  Sex: Female
  Weight: 68.0396 kg

DRUGS (2)
  1. ZICAM ALLERGY RELIEF NASAL GEL [Suspect]
     Dosage: QID X 2 DAYS
     Dates: start: 20100609, end: 20100611
  2. ZICAM ALLERGY RELIEF NASAL GEL [Suspect]
     Dosage: QID X 2 DAYS
     Dates: start: 20100609, end: 20100611

REACTIONS (1)
  - ANOSMIA [None]
